FAERS Safety Report 10531140 (Version 4)
Quarter: 2014Q4

REPORT INFORMATION
  Report Type: Spontaneous
  Country: JP (occurrence: JP)
  Receive Date: 20141021
  Receipt Date: 20141202
  Transmission Date: 20150529
  Serious: Yes (Other)
  Sender: FDA-Public Use
  Company Number: JP-PFIZER INC-2014273937

PATIENT
  Age: 82 Year
  Sex: Male

DRUGS (4)
  1. YODEL [Suspect]
     Active Substance: SENNA LEAF
     Dosage: UNK
     Dates: start: 201311
  2. MYSLEE [Suspect]
     Active Substance: ZOLPIDEM TARTRATE
     Dosage: UNK
     Dates: start: 201311
  3. CARDENALIN [Suspect]
     Active Substance: DOXAZOSIN MESYLATE
     Dosage: 1 MG, DAILY
     Route: 048
     Dates: start: 201311
  4. ROZEREM [Suspect]
     Active Substance: RAMELTEON
     Dosage: UNK
     Dates: start: 201311

REACTIONS (1)
  - Plasma cell myeloma [Unknown]

NARRATIVE: CASE EVENT DATE: 20141001
